FAERS Safety Report 12413875 (Version 1)
Quarter: 2016Q2

REPORT INFORMATION
  Report Type: Not Available
  Country: BR (occurrence: BR)
  Receive Date: 20160527
  Receipt Date: 20160527
  Transmission Date: 20160815
  Serious: Yes (Congenital Anomaly)
  Sender: FDA-Public Use
  Company Number: BR-ANIPHARMA-2016-BR-000007

PATIENT
  Sex: Male

DRUGS (3)
  1. MISOPROSTOL. [Suspect]
     Active Substance: MISOPROSTOL
     Dosage: MATERNAL USE OF 400 MCG ORALLY AND 600 MCG VAGINALLY
     Route: 015
  2. VALPROIC ACID (NON-SPECIFIC) [Suspect]
     Active Substance: VALPROIC ACID
     Dosage: 250 MG DAILY
     Route: 015
  3. CARBAMAZEPINE. [Suspect]
     Active Substance: CARBAMAZEPINE
     Dosage: 200 MG THREE TIMES DAILY
     Route: 015

REACTIONS (1)
  - Congenital cystic lung [Not Recovered/Not Resolved]
